FAERS Safety Report 4861388-0 (Version None)
Quarter: 2005Q4

REPORT INFORMATION
  Report Type: 
  Country: None (occurrence: None)
  Receive Date: 20051220
  Receipt Date: 20051109
  Transmission Date: 20060501
  Serious: Yes (Hospitalization)
  Sender: FDA-Public Use
  Company Number: JP-ROCHE-424612

PATIENT
  Age: 56 Year
  Sex: Male
  Weight: 89 kg

DRUGS (8)
  1. PEGASYS [Suspect]
     Dosage: DOSE FORM REPORTED AS INJECTABLE.
     Route: 058
     Dates: start: 20050808, end: 20051011
  2. PEGASYS [Suspect]
     Route: 058
     Dates: start: 20050823
  3. PEGASYS [Suspect]
     Route: 058
     Dates: start: 20050906, end: 20051011
  4. LASIX [Concomitant]
     Route: 048
     Dates: start: 20050515
  5. ALDACTONE [Concomitant]
     Route: 048
     Dates: start: 20050515
  6. PARIET [Concomitant]
     Route: 048
     Dates: start: 20050515
  7. FASTIC [Concomitant]
     Route: 048
     Dates: start: 20050515
  8. AMOBAN [Concomitant]
     Route: 048
     Dates: start: 20050515

REACTIONS (1)
  - NEPHROTIC SYNDROME [None]
